FAERS Safety Report 18622608 (Version 1)
Quarter: 2020Q4

REPORT INFORMATION
  Report Type: Spontaneous
  Country: FR (occurrence: FR)
  Receive Date: 20201216
  Receipt Date: 20201216
  Transmission Date: 20210114
  Serious: Yes (Hospitalization)
  Sender: FDA-Public Use
  Company Number: FR-PFIZER INC-2020490709

PATIENT
  Age: 83 Year
  Sex: Female

DRUGS (8)
  1. HUMALOG [Concomitant]
     Active Substance: INSULIN LISPRO
     Dosage: UNK
  2. BISOPROLOL HEMIFUMARATE [Concomitant]
     Active Substance: BISOPROLOL FUMARATE
     Dosage: UNK
  3. ATORVASTATIN CALCIUM. [Suspect]
     Active Substance: ATORVASTATIN CALCIUM
     Dosage: UNK
     Route: 048
     Dates: end: 201606
  4. LANSOPRAZOLE. [Concomitant]
     Active Substance: LANSOPRAZOLE
     Dosage: UNK
  5. COUMADINE [Suspect]
     Active Substance: WARFARIN SODIUM
     Indication: ATRIAL FIBRILLATION
     Dosage: 1 MG, 1X/DAY
     Route: 048
     Dates: end: 20160613
  6. LASILIX [FUROSEMIDE] [Concomitant]
     Active Substance: FUROSEMIDE
     Dosage: UNK
  7. DIFFU K [Concomitant]
     Active Substance: POTASSIUM CHLORIDE
     Dosage: UNK
  8. DESLORATADINE. [Concomitant]
     Active Substance: DESLORATADINE
     Dosage: UNK

REACTIONS (1)
  - Haemoptysis [Recovered/Resolved]

NARRATIVE: CASE EVENT DATE: 20160613
